FAERS Safety Report 22236200 (Version 1)
Quarter: 2023Q2

REPORT INFORMATION
  Report Type: Spontaneous
  Country: BR (occurrence: BR)
  Receive Date: 20230420
  Receipt Date: 20230420
  Transmission Date: 20230721
  Serious: Yes (Other)
  Sender: FDA-Public Use
  Company Number: BR-BoehringerIngelheim-2023-BI-231835

PATIENT
  Age: 74 Year
  Sex: Male
  Weight: 89 kg

DRUGS (2)
  1. MICARDIS HCT [Suspect]
     Active Substance: HYDROCHLOROTHIAZIDE\TELMISARTAN
     Indication: Hypertension
     Dosage: 80MG + 12.5
     Route: 048
     Dates: start: 2015, end: 2022
  2. MICARDIS [Suspect]
     Active Substance: TELMISARTAN
     Indication: Hypertension
     Route: 048
     Dates: start: 2022

REACTIONS (9)
  - Prostate cancer [Unknown]
  - Cholecystitis [Recovered/Resolved]
  - Arterial disorder [Unknown]
  - Weight decreased [Unknown]
  - Arteriosclerosis [Unknown]
  - Visual impairment [Unknown]
  - Pollakiuria [Not Recovered/Not Resolved]
  - Product physical issue [Unknown]
  - Pain [Unknown]

NARRATIVE: CASE EVENT DATE: 20220301
